FAERS Safety Report 11084959 (Version 2)
Quarter: 2015Q2

REPORT INFORMATION
  Report Type: Spontaneous
  Country: US (occurrence: US)
  Receive Date: 20150503
  Receipt Date: 20150525
  Transmission Date: 20150821
  Serious: Yes (Other)
  Sender: FDA-Public Use
  Company Number: US-JNJFOC-20130705644

PATIENT
  Age: 72 Year
  Sex: Female
  Weight: 72.58 kg

DRUGS (17)
  1. XARELTO [Suspect]
     Active Substance: RIVAROXABAN
     Indication: THROMBOSIS PROPHYLAXIS
     Route: 048
     Dates: start: 20130523, end: 20130620
  2. XARELTO [Suspect]
     Active Substance: RIVAROXABAN
     Indication: HIP ARTHROPLASTY
     Route: 048
     Dates: start: 20130523, end: 20130620
  3. IBUPROFEN. [Suspect]
     Active Substance: IBUPROFEN
     Indication: PAIN
     Dosage: AS NEEDED
     Route: 048
     Dates: start: 2011, end: 20130529
  4. IRON [Concomitant]
     Active Substance: IRON
     Indication: GENERAL PHYSICAL CONDITION
     Route: 048
     Dates: start: 201305, end: 201305
  5. GARLIC. [Concomitant]
     Active Substance: GARLIC
     Indication: BLOOD CHOLESTEROL DECREASED
     Route: 048
  6. MELOXICAM. [Suspect]
     Active Substance: MELOXICAM
     Indication: ARTHRITIS
     Route: 048
     Dates: start: 2012, end: 20130529
  7. ASPIRIN. [Suspect]
     Active Substance: ASPIRIN
     Indication: PRODUCT USED FOR UNKNOWN INDICATION
     Dosage: DOSE :2 IB
     Route: 065
  8. NIACIN. [Concomitant]
     Active Substance: NIACIN
     Indication: GENERAL PHYSICAL CONDITION
     Dosage: TWO 500 MG CAPSULES TWICE DAILY
     Route: 048
     Dates: start: 2012
  9. XARELTO [Suspect]
     Active Substance: RIVAROXABAN
     Indication: THROMBOSIS PROPHYLAXIS
     Route: 048
     Dates: start: 20130523, end: 20130620
  10. OMEGA XL [Concomitant]
     Active Substance: DIETARY SUPPLEMENT
     Indication: GENERAL PHYSICAL CONDITION
     Dosage: FOR ABOUT 25-30 YEARS
     Route: 048
  11. B VITAMIN COMPLEX [Concomitant]
     Indication: GENERAL PHYSICAL CONDITION
     Dosage: FOR ABOUT 25-30 YEARS
     Route: 048
  12. MELOXICAM. [Suspect]
     Active Substance: MELOXICAM
     Indication: ARTHRITIS
     Route: 048
     Dates: start: 20130629
  13. DULCOLAX [Concomitant]
     Active Substance: BISACODYL OR DOCUSATE SODIUM
     Indication: ABNORMAL FAECES
     Route: 048
     Dates: start: 201305, end: 201305
  14. IBUPROFEN. [Suspect]
     Active Substance: IBUPROFEN
     Indication: PAIN
     Route: 048
     Dates: start: 20130629
  15. CALCIUM MAGNESIUM ZINC [Concomitant]
     Active Substance: CALCIUM\MAGNESIUM\ZINC
     Indication: GENERAL PHYSICAL CONDITION
     Dosage: FOR ABOUT 25-30 YEARS
     Route: 048
  16. OMEGA XL [Concomitant]
     Active Substance: DIETARY SUPPLEMENT
     Indication: GENERAL PHYSICAL CONDITION
     Route: 048
  17. GARLIC. [Concomitant]
     Active Substance: GARLIC
     Indication: BLOOD CHOLESTEROL DECREASED
     Route: 048

REACTIONS (2)
  - Inappropriate schedule of drug administration [Unknown]
  - Epistaxis [Recovered/Resolved]

NARRATIVE: CASE EVENT DATE: 20130523
